FAERS Safety Report 22164274 (Version 2)
Quarter: 2023Q2

REPORT INFORMATION
  Report Type: Report from Study
  Country: US (occurrence: US)
  Receive Date: 20230403
  Receipt Date: 20230406
  Transmission Date: 20230722
  Serious: No
  Sender: FDA-Public Use
  Company Number: US-ABBVIE-4711987

PATIENT
  Sex: Male
  Weight: 88.45 kg

DRUGS (2)
  1. HUMIRA [Suspect]
     Active Substance: ADALIMUMAB
     Indication: Crohn^s disease
     Route: 058
     Dates: start: 20210611
  2. HUMIRA [Suspect]
     Active Substance: ADALIMUMAB
     Indication: Hepatic steatosis

REACTIONS (3)
  - Off label use [Not Recovered/Not Resolved]
  - Acrochordon [Not Recovered/Not Resolved]
  - Skin papilloma [Not Recovered/Not Resolved]

NARRATIVE: CASE EVENT DATE: 20210101
